FAERS Safety Report 22361392 (Version 1)
Quarter: 2023Q2

REPORT INFORMATION
  Report Type: Spontaneous
  Country: US (occurrence: US)
  Receive Date: 20230524
  Receipt Date: 20230524
  Transmission Date: 20230721
  Serious: No
  Sender: FDA-Public Use
  Company Number: US-PFIZER INC-202300198311

PATIENT
  Age: 76 Year
  Sex: Female
  Weight: 112.02 kg

DRUGS (2)
  1. FUROSEMIDE [Suspect]
     Active Substance: FUROSEMIDE
     Indication: Swelling
     Dosage: UNK
  2. TORSEMIDE [Suspect]
     Active Substance: TORSEMIDE
     Indication: Swelling
     Dosage: UNK
     Dates: end: 202305

REACTIONS (1)
  - Drug ineffective [Unknown]
